FAERS Safety Report 17061552 (Version 1)
Quarter: 2019Q4

REPORT INFORMATION
  Report Type: Spontaneous
  Country: DE (occurrence: DE)
  Receive Date: 20191121
  Receipt Date: 20191121
  Transmission Date: 20200122
  Serious: Yes (Other)
  Sender: FDA-Public Use
  Company Number: DE-MYLANLABS-2019M1111830

PATIENT
  Age: 67 Year
  Sex: Female

DRUGS (3)
  1. ESTRADIOL. [Suspect]
     Active Substance: ESTRADIOL
     Indication: MENOPAUSAL SYMPTOMS
     Dosage: 1 DOSAGE FORM, QD
     Route: 062
     Dates: start: 201905
  2. ESTRADIOL. [Suspect]
     Active Substance: ESTRADIOL
     Dosage: 1 PUFF EVERY 2ND DAY (1 IN 2 D)
     Route: 062
     Dates: end: 201907
  3. PROGESTERONE. [Suspect]
     Active Substance: PROGESTERONE
     Indication: PREVENTION OF ENDOMETRIAL HYPERPLASIA
     Dosage: 100 MG (1 IN 1 D)
     Route: 048
     Dates: start: 201905, end: 201907

REACTIONS (2)
  - Dyspnoea [Not Recovered/Not Resolved]
  - Uterine haemorrhage [Recovered/Resolved]

NARRATIVE: CASE EVENT DATE: 2019
